FAERS Safety Report 8379735-4 (Version None)
Quarter: 2012Q1

REPORT INFORMATION
  Report Type: 
  Country: None (occurrence: None)
  Receive Date: 20120323
  Receipt Date: 20110322
  Transmission Date: 20120608
  Serious: Yes (Disabling, Other)
  Sender: FDA-Public Use
  Company Number: 163-21880-11032756

PATIENT
  Age: 63 Year
  Sex: Female
  Weight: 60.782 kg

DRUGS (14)
  1. LASIX [Concomitant]
  2. MULTIVITAMIN [Concomitant]
  3. VITAMN D (ERGOCALCIFEROL) [Concomitant]
  4. IMODIUM [Concomitant]
  5. REVLIMID [Suspect]
     Indication: MULTIPLE MYELOMA
     Dosage: 25 MG, DAILY Q 14/7, PO
     Route: 048
     Dates: start: 20110221
  6. LOVENOX [Concomitant]
  7. TOPROL-XL [Concomitant]
  8. NEXIUM [Concomitant]
  9. SYNTHROID [Concomitant]
  10. PROMETHAZINE [Concomitant]
  11. ARANESP [Concomitant]
  12. LIPITOR [Concomitant]
  13. FLAXSEED OIL (LINSEED OIL) [Concomitant]
  14. POTASSIUM CHLORIDE [Concomitant]

REACTIONS (1)
  - BLOOD CREATININE INCREASED [None]
